FAERS Safety Report 11009162 (Version 2)
Quarter: 2015Q4

REPORT INFORMATION
  Report Type: Spontaneous
  Country: US (occurrence: US)
  Receive Date: 20150410
  Receipt Date: 20151008
  Transmission Date: 20160304
  Serious: No
  Sender: FDA-Public Use
  Company Number: US-PFIZER INC-2015118923

PATIENT
  Age: 81 Year
  Sex: Female

DRUGS (1)
  1. IBRANCE [Suspect]
     Active Substance: PALBOCICLIB
     Indication: BREAST CANCER
     Dosage: 125 MG, 1X/DAY
     Route: 048
     Dates: start: 20150324

REACTIONS (6)
  - Dizziness [Unknown]
  - Nausea [Recovered/Resolved]
  - Headache [Recovered/Resolved]
  - Abdominal discomfort [Recovered/Resolved]
  - Fatigue [Unknown]
  - Decreased appetite [Unknown]
